FAERS Safety Report 5216406-7 (Version None)
Quarter: 2007Q1

REPORT INFORMATION
  Report Type: 
  Country: None (occurrence: None)
  Receive Date: 20070118
  Receipt Date: 20070112
  Transmission Date: 20070707
  Serious: Yes (Other)
  Sender: FDA-Public Use
  Company Number: 149128USA

PATIENT
  Age: 84 Year
  Sex: Male
  Weight: 82.5547 kg

DRUGS (9)
  1. AMIODARONE HYDROCHLORIDE [Suspect]
     Indication: HEART RATE IRREGULAR
     Dosage: 400 MG (200 MG, 2 IN 1 D), ORAL
     Route: 048
     Dates: start: 20050404
  2. ASTHMA MEDICATION [Concomitant]
  3. WARFARIN SODIUM [Concomitant]
  4. HIGH BLOOD PRESSURE MEDICATION [Concomitant]
  5. NIFEDIPINE [Concomitant]
  6. ISOSORBIDE MONONITRATE [Concomitant]
  7. DIAZEPAM [Concomitant]
  8. SALBUTAMOL [Concomitant]
  9. THEOPHYLLINE [Concomitant]

REACTIONS (11)
  - ASTHENIA [None]
  - BALANCE DISORDER [None]
  - CEREBELLAR ATROPHY [None]
  - CONTUSION [None]
  - FALL [None]
  - GAIT DISTURBANCE [None]
  - HEAD INJURY [None]
  - INFLAMMATION [None]
  - INTERNATIONAL NORMALISED RATIO INCREASED [None]
  - PROTHROMBIN TIME PROLONGED [None]
  - THROMBOSIS [None]
